FAERS Safety Report 5839975-2 (Version None)
Quarter: 2008Q3

REPORT INFORMATION
  Report Type: 
  Country: None (occurrence: None)
  Receive Date: 20080807
  Receipt Date: 20080807
  Transmission Date: 20090109
  Serious: Yes (Other)
  Sender: FDA-Public Use
  Company Number: None

PATIENT
  Age: 16 Year
  Sex: Female
  Weight: 46.5844 kg

DRUGS (2)
  1. PENTAM [Suspect]
     Indication: PNEUMOCYSTIS JIROVECI PNEUMONIA
     Dosage: 410 MG ONCE IV
     Route: 042
     Dates: end: 20080714
  2. PENTAM [Suspect]
     Indication: PROPHYLAXIS
     Dosage: 410 MG ONCE IV
     Route: 042
     Dates: end: 20080714

REACTIONS (1)
  - HYPOAESTHESIA FACIAL [None]
